FAERS Safety Report 17969652 (Version 2)
Quarter: 2020Q3

REPORT INFORMATION
  Report Type: Spontaneous
  Country: US (occurrence: US)
  Receive Date: 20200701
  Receipt Date: 20200825
  Transmission Date: 20201103
  Serious: Yes (Death, Hospitalization, Other)
  Sender: FDA-Public Use
  Company Number: US-GILEAD-2020-0477741

PATIENT
  Age: 87 Year
  Sex: Male
  Weight: 72 kg

DRUGS (2)
  1. REMDESIVIR. [Suspect]
     Active Substance: REMDESIVIR
     Indication: COVID-19
     Dosage: 100 MG, QD
     Route: 042
     Dates: start: 20200602, end: 20200606
  2. TOCILIZUMAB. [Concomitant]
     Active Substance: TOCILIZUMAB
     Dosage: UNK
     Dates: start: 20200609, end: 20200609

REACTIONS (7)
  - Death [Fatal]
  - Hypoxia [Unknown]
  - Pyrexia [Unknown]
  - Cardiac arrest [Not Recovered/Not Resolved]
  - Respiratory failure [Unknown]
  - Aspartate aminotransferase increased [Not Recovered/Not Resolved]
  - Bradycardia [Not Recovered/Not Resolved]

NARRATIVE: CASE EVENT DATE: 20200621
